FAERS Safety Report 4895923-3 (Version None)
Quarter: 2005Q4

REPORT INFORMATION
  Report Type: 
  Country: None (occurrence: None)
  Receive Date: 20051220
  Receipt Date: 20050204
  Transmission Date: 20060501
  Serious: Yes (Other)
  Sender: FDA-Public Use
  Company Number: US111737

PATIENT
  Age: 75 Year
  Sex: Female

DRUGS (7)
  1. ENBREL [Suspect]
     Indication: PSORIASIS
     Dosage: 50 MG, 1 IN 1 WEEKS, SC
     Route: 058
     Dates: start: 20031201
  2. RALOXIFEN HCL [Concomitant]
  3. PAROXETINE HYDROCHLORIDE [Concomitant]
  4. TRAMADOL HCL [Concomitant]
  5. VALPROATE SODIUM [Concomitant]
  6. HUMABID [Concomitant]
  7. CELECOXIB [Concomitant]

REACTIONS (1)
  - BREAST CANCER [None]
